FAERS Safety Report 7298027-8 (Version None)
Quarter: 2011Q1

REPORT INFORMATION
  Report Type: 
  Country: None (occurrence: None)
  Receive Date: 20110217
  Receipt Date: 20110214
  Transmission Date: 20110831
  Serious: Yes (Other)
  Sender: FDA-Public Use
  Company Number: US-PFIZER INC-2011032722

PATIENT
  Sex: Male
  Weight: 81.633 kg

DRUGS (2)
  1. GABAPENTIN [Suspect]
     Dosage: UNK
  2. LYRICA [Suspect]
     Indication: NERVE INJURY
     Dosage: 50 MG, 2X/DAY
     Dates: start: 20110212

REACTIONS (4)
  - HYPERSENSITIVITY [None]
  - SKIN FISSURES [None]
  - BACK PAIN [None]
  - DRY SKIN [None]
